FAERS Safety Report 15820453 (Version 2)
Quarter: 2019Q1

REPORT INFORMATION
  Report Type: Spontaneous
  Country: FR (occurrence: FR)
  Receive Date: 20190114
  Receipt Date: 20190124
  Transmission Date: 20190417
  Serious: Yes (Hospitalization, Other)
  Sender: FDA-Public Use
  Company Number: FR-009507513-1901FRA002101

PATIENT
  Sex: Male

DRUGS (2)
  1. REBETOL [Suspect]
     Active Substance: RIBAVIRIN
     Route: 048
  2. REBETOL [Suspect]
     Active Substance: RIBAVIRIN

REACTIONS (3)
  - Dysphagia [Unknown]
  - Neoplasm malignant [Unknown]
  - Off label use [Unknown]
